FAERS Safety Report 5763492-1 (Version None)
Quarter: 2008Q2

REPORT INFORMATION
  Report Type: 
  Country: None (occurrence: None)
  Receive Date: 20080529
  Receipt Date: 20080214
  Transmission Date: 20081010
  Serious: Yes (Other)
  Sender: FDA-Public Use
  Company Number: FLCT20080027

PATIENT
  Age: 40 Year
  Sex: Female
  Weight: 68.0396 kg

DRUGS (1)
  1. FLECTOR [Suspect]
     Indication: BACK PAIN
     Dosage: 1 PATCH, TOPICAL
     Route: 061
     Dates: start: 20080101, end: 20080101

REACTIONS (2)
  - DYSPNOEA [None]
  - HYPERSENSITIVITY [None]
